FAERS Safety Report 9215076 (Version 4)
Quarter: 2013Q2

REPORT INFORMATION
  Report Type: Spontaneous
  Country: JP (occurrence: JP)
  Receive Date: 20130405
  Receipt Date: 20130603
  Transmission Date: 20140414
  Serious: Yes (Hospitalization)
  Sender: FDA-Public Use
  Company Number: JP-BAYER-2013-040762

PATIENT
  Age: 72 Year
  Sex: Male
  Weight: 69 kg

DRUGS (5)
  1. NEXAVAR [Suspect]
     Indication: HEPATOCELLULAR CARCINOMA
     Dosage: 400 MG, BID
     Route: 048
     Dates: start: 20130304, end: 20130325
  2. URSO [Concomitant]
     Indication: LIVER DISORDER
     Dosage: DAILY DOSE 300 MG
     Route: 048
  3. LIVACT [Concomitant]
     Indication: HEPATIC CIRRHOSIS
     Dosage: DAILY DOSE 12.45 G
     Route: 048
  4. 5-FU [Concomitant]
  5. CISPLATIN [Concomitant]
     Dosage: UNK

REACTIONS (2)
  - Hepatic encephalopathy [Recovered/Resolved with Sequelae]
  - Rhabdomyolysis [Recovering/Resolving]
